FAERS Safety Report 7891469-9 (Version None)
Quarter: 2011Q4

REPORT INFORMATION
  Report Type: 
  Country: None (occurrence: None)
  Receive Date: 20111103
  Receipt Date: 20110803
  Transmission Date: 20120403
  Serious: No
  Sender: FDA-Public Use
  Company Number: US-AMGEN-USASP2011039288

PATIENT
  Age: 58 Year
  Sex: Female
  Weight: 120 kg

DRUGS (6)
  1. CENTRUM                            /00554501/ [Concomitant]
     Dosage: UNK
  2. ALEVE [Concomitant]
     Dosage: 220 MG, UNK
  3. ENBREL [Suspect]
     Indication: PSORIATIC ARTHROPATHY
     Dosage: 50 MG, QWK
     Dates: start: 20110727
  4. FOLIC ACID [Concomitant]
     Dosage: 1 MG, UNK
  5. METHOTREXATE [Concomitant]
     Dosage: 2.5 MG, UNK
  6. CITRICAL D [Concomitant]
     Dosage: UNK

REACTIONS (2)
  - ASTHENIA [None]
  - MUSCULOSKELETAL PAIN [None]
